FAERS Safety Report 10525525 (Version 1)
Quarter: 2014Q4

REPORT INFORMATION
  Report Type: Spontaneous
  Country: SE (occurrence: SE)
  Receive Date: 20141017
  Receipt Date: 20141017
  Transmission Date: 20150528
  Serious: Yes (Hospitalization)
  Sender: FDA-Public Use
  Company Number: SE-PFIZER INC-2014282670

PATIENT
  Age: 32 Year
  Sex: Female

DRUGS (1)
  1. DALACIN [Suspect]
     Active Substance: CLINDAMYCIN\CLINDAMYCIN PHOSPHATE
     Indication: TONSILLITIS
     Dosage: 1 DF, 3X/DAY
     Dates: start: 201406, end: 20140616

REACTIONS (5)
  - Sensation of foreign body [Recovered/Resolved]
  - Glossodynia [Recovered/Resolved]
  - Dizziness [Unknown]
  - Panic disorder [Unknown]
  - Dyspnoea [Unknown]

NARRATIVE: CASE EVENT DATE: 20140615
